FAERS Safety Report 7379060-4 (Version None)
Quarter: 2011Q1

REPORT INFORMATION
  Report Type: 
  Country: None (occurrence: None)
  Receive Date: 20110328
  Receipt Date: 20110324
  Transmission Date: 20110831
  Serious: Yes (Life-Threatening)
  Sender: FDA-Public Use
  Company Number: GXKR2011DE01291

PATIENT
  Age: 76 Year
  Sex: Female
  Weight: 68 kg

DRUGS (2)
  1. CLOPIDOGREL TAD [Suspect]
     Indication: STENT PLACEMENT
     Dosage: 1 DF, UNK
     Route: 048
     Dates: start: 20100923, end: 20101113
  2. ACETYLSALICYLIC ACID [Suspect]
     Indication: STENT PLACEMENT
     Dosage: 100 MG, QD
     Route: 048
     Dates: start: 20100923, end: 20101113

REACTIONS (2)
  - DUODENAL ULCER HAEMORRHAGE [None]
  - ULCER HAEMORRHAGE [None]
